FAERS Safety Report 8255714-2 (Version None)
Quarter: 2012Q2

REPORT INFORMATION
  Report Type: 
  Country: None (occurrence: None)
  Receive Date: 20120403
  Receipt Date: 20120403
  Transmission Date: 20120825
  Serious: Yes (Hospitalization)
  Sender: FDA-Public Use
  Company Number: None

PATIENT
  Age: 45 Year
  Sex: Female
  Weight: 56.699 kg

DRUGS (7)
  1. CITALOPRAM HYDROBROMIDE [Suspect]
     Indication: DEPRESSION
     Dosage: 20.0 MG
     Route: 048
     Dates: start: 20090715, end: 20110924
  2. RISPERIDONE [Concomitant]
  3. ESTAZOLAM [Concomitant]
  4. XANAX [Concomitant]
  5. NEURONTIN [Concomitant]
  6. LUNESTA [Concomitant]
  7. NAVANE [Concomitant]

REACTIONS (3)
  - PALPITATIONS [None]
  - TACHYCARDIA [None]
  - HYPERTENSION [None]
